FAERS Safety Report 19515344 (Version 3)
Quarter: 2021Q3

REPORT INFORMATION
  Report Type: Other
  Country: US (occurrence: US)
  Receive Date: 20210710
  Receipt Date: 20210908
  Transmission Date: 20211014
  Serious: Yes (Hospitalization, Other)
  Sender: FDA-Public Use
  Company Number: US-ROCHE-2866341

PATIENT
  Age: 57 Year
  Sex: Female
  Weight: 69.01 kg

DRUGS (3)
  1. OCREVUS [Suspect]
     Active Substance: OCRELIZUMAB
     Indication: PROGRESSIVE MULTIPLE SCLEROSIS
     Dosage: PREVIOUS DATE OF TREATMENT = 09/DEC/2019, 23/DEC/2019, 15/JUN/2020, 02/DEC/2020
     Route: 042
     Dates: start: 20191209
  2. OCREVUS [Suspect]
     Active Substance: OCRELIZUMAB
     Indication: RELAPSING-REMITTING MULTIPLE SCLEROSIS
     Route: 042
     Dates: start: 201912
  3. IRON [Concomitant]
     Active Substance: IRON
     Indication: IRON DEFICIENCY
     Route: 048

REACTIONS (4)
  - Urinary tract infection [Recovered/Resolved]
  - Gait disturbance [Not Recovered/Not Resolved]
  - Multiple sclerosis relapse [Unknown]
  - Spinal cord oedema [Not Recovered/Not Resolved]

NARRATIVE: CASE EVENT DATE: 20210530
